FAERS Safety Report 7093518-7 (Version None)
Quarter: 2010Q4

REPORT INFORMATION
  Report Type: 
  Country: None (occurrence: None)
  Receive Date: 20101109
  Receipt Date: 20101104
  Transmission Date: 20110411
  Serious: Yes (Hospitalization)
  Sender: FDA-Public Use
  Company Number: DL2010-0905

PATIENT
  Age: 25 Year
  Sex: Female

DRUGS (4)
  1. MIFEPRISTONE (MIFEPREX) [Suspect]
     Indication: ABORTION INDUCED
     Dosage: 200 MG, ORAL
     Route: 048
     Dates: start: 20100917
  2. MISOPROSTOL [Suspect]
     Dosage: 800 MCG, BUCCAL
     Route: 002
     Dates: start: 20100919
  3. MISOPROSTOL [Suspect]
     Dosage: 800 MCG, BUCCAL
     Route: 002
     Dates: start: 20100924
  4. DOXYCYCLINE [Concomitant]

REACTIONS (5)
  - PELVIC INFECTION [None]
  - PERITONITIS [None]
  - SEPSIS [None]
  - TOXIC SHOCK SYNDROME STREPTOCOCCAL [None]
  - UTERINE CERVICAL LACERATION [None]
